FAERS Safety Report 24967844 (Version 1)
Quarter: 2025Q1

REPORT INFORMATION
  Report Type: Spontaneous
  Country: TW (occurrence: TW)
  Receive Date: 20250214
  Receipt Date: 20250214
  Transmission Date: 20250408
  Serious: Yes (Other)
  Sender: UCB
  Company Number: TW-GSK-TW2025APC013755

PATIENT
  Age: 22 Year
  Sex: Female

DRUGS (12)
  1. KEPPRA [Suspect]
     Active Substance: LEVETIRACETAM
     Indication: Seizure
     Dates: start: 20210105
  2. KEPPRA [Suspect]
     Active Substance: LEVETIRACETAM
     Dates: start: 20210112
  3. KEPPRA [Suspect]
     Active Substance: LEVETIRACETAM
     Dates: start: 20210407
  4. KEPPRA [Suspect]
     Active Substance: LEVETIRACETAM
     Dates: start: 20210612
  5. KEPPRA [Suspect]
     Active Substance: LEVETIRACETAM
     Dates: start: 20210904
  6. KEPPRA [Suspect]
     Active Substance: LEVETIRACETAM
     Dates: start: 20211127
  7. TOPIRAMATE [Suspect]
     Active Substance: TOPIRAMATE
     Indication: Seizure
     Dates: start: 20210105
  8. TOPIRAMATE [Suspect]
     Active Substance: TOPIRAMATE
     Dates: start: 20210112
  9. TOPIRAMATE [Suspect]
     Active Substance: TOPIRAMATE
     Dates: start: 20210407
  10. TOPIRAMATE [Suspect]
     Active Substance: TOPIRAMATE
     Dates: start: 20210612
  11. TOPIRAMATE [Suspect]
     Active Substance: TOPIRAMATE
     Dates: start: 20210904
  12. TOPIRAMATE [Suspect]
     Active Substance: TOPIRAMATE
     Dates: start: 20211127

REACTIONS (2)
  - Abortion threatened [Unknown]
  - Maternal exposure during pregnancy [Unknown]
